FAERS Safety Report 23835556 (Version 1)
Quarter: 2024Q2

REPORT INFORMATION
  Report Type: Other
  Country: JP (occurrence: JP)
  Receive Date: 20240509
  Receipt Date: 20240509
  Transmission Date: 20240715
  Serious: Yes (Life-Threatening)
  Sender: FDA-Public Use
  Company Number: JP-B.Braun Medical Inc.-2156716

PATIENT
  Age: 69 Year
  Sex: Male

DRUGS (6)
  1. HEPARIN SODIUM IN DEXTROSE [Suspect]
     Active Substance: HEPARIN SODIUM
     Indication: Anticoagulation drug level therapeutic
  2. WARFARIN SODIUM [Suspect]
     Active Substance: WARFARIN SODIUM
  3. HYDROXYUREA [Suspect]
     Active Substance: HYDROXYUREA
  4. ASPIRIN [Suspect]
     Active Substance: ASPIRIN
  5. NAFAMOSTAT [Suspect]
     Active Substance: NAFAMOSTAT
  6. ARGATROBAN [Suspect]
     Active Substance: ARGATROBAN

REACTIONS (2)
  - Drug ineffective [Unknown]
  - Cardiac tamponade [Unknown]
